FAERS Safety Report 20145401 (Version 1)
Quarter: 2021Q4

REPORT INFORMATION
  Report Type: Spontaneous
  Country: US (occurrence: None)
  Receive Date: 20211202
  Receipt Date: 20211202
  Transmission Date: 20220303
  Serious: No
  Sender: FDA-Public Use
  Company Number: None

PATIENT

DRUGS (1)
  1. MONSELS [Suspect]
     Active Substance: FERRIC SUBSULFATE
     Indication: Product used for unknown indication

REACTIONS (4)
  - Product use complaint [None]
  - Product label confusion [None]
  - Product formulation issue [None]
  - Packaging design issue [None]
